FAERS Safety Report 12468717 (Version 1)
Quarter: 2016Q2

REPORT INFORMATION
  Report Type: Spontaneous
  Country: US (occurrence: US)
  Receive Date: 20160615
  Receipt Date: 20160615
  Transmission Date: 20160815
  Serious: Yes (Hospitalization)
  Sender: FDA-Public Use
  Company Number: US-JNJFOC-20160606021

PATIENT
  Age: 68 Year
  Sex: Female

DRUGS (21)
  1. DARZALEX [Suspect]
     Active Substance: DARATUMUMAB
     Indication: PLASMA CELL MYELOMA
     Route: 042
  2. LOSARTAN. [Concomitant]
     Active Substance: LOSARTAN
  3. VITAMIN D [Concomitant]
     Active Substance: CHOLECALCIFEROL
  4. KRILL OIL [Concomitant]
     Active Substance: DIETARY SUPPLEMENT
  5. ACYCLOVIR. [Concomitant]
     Active Substance: ACYCLOVIR
  6. NEURONTIN [Concomitant]
     Active Substance: GABAPENTIN
  7. MAGNESIUM [Concomitant]
     Active Substance: MAGNESIUM
  8. SENOKOT [Concomitant]
     Active Substance: SENNOSIDES
  9. CLARITIN [Concomitant]
     Active Substance: LORATADINE
  10. OXYCODONE [Concomitant]
     Active Substance: OXYCODONE
  11. BACTRIM [Concomitant]
     Active Substance: SULFAMETHOXAZOLE\TRIMETHOPRIM
     Indication: PROPHYLAXIS
  12. VITAMIN C [Concomitant]
     Active Substance: ASCORBIC ACID
  13. SOLU-MEDROL [Concomitant]
     Active Substance: METHYLPREDNISOLONE SODIUM SUCCINATE
  14. B-VITAMINS [Concomitant]
  15. CYMBALTA [Concomitant]
     Active Substance: DULOXETINE HYDROCHLORIDE
  16. PRILOSEC [Concomitant]
     Active Substance: OMEPRAZOLE MAGNESIUM
  17. ESTRACE [Concomitant]
     Active Substance: ESTRADIOL
  18. BABY ASPIRIN [Concomitant]
     Active Substance: ASPIRIN
  19. COQ10 [Concomitant]
     Active Substance: UBIDECARENONE
  20. MS CONTIN [Concomitant]
     Active Substance: MORPHINE SULFATE
  21. SIMETHICONE (DIMETHICONE) [Concomitant]
     Active Substance: DIMETHICONE

REACTIONS (6)
  - Pulseless electrical activity [Unknown]
  - Lactic acidosis [Unknown]
  - Respiratory acidosis [Unknown]
  - Confusional state [Unknown]
  - Encephalopathy [Unknown]
  - Hypertension [Unknown]
